FAERS Safety Report 6261479-6 (Version None)
Quarter: 2009Q3

REPORT INFORMATION
  Report Type: 
  Country: None (occurrence: None)
  Receive Date: 20090707
  Receipt Date: 20090707
  Transmission Date: 20100115
  Serious: Yes (Hospitalization)
  Sender: FDA-Public Use
  Company Number: None

PATIENT
  Age: 78 Year
  Sex: Male
  Weight: 70.7611 kg

DRUGS (11)
  1. IXABEPILONE [Suspect]
     Indication: GALLBLADDER CANCER METASTATIC
     Dosage: 54 DAY 1 OF CYCLE IV DRIP
     Route: 041
     Dates: start: 20090609, end: 20090630
  2. IXABEPILONE [Suspect]
     Indication: METASTASES TO LIVER
     Dosage: 54 DAY 1 OF CYCLE IV DRIP
     Route: 041
     Dates: start: 20090609, end: 20090630
  3. PILOCARPINE HYDROCHLORIDE [Concomitant]
  4. ALLOPURINOL [Concomitant]
  5. SIMVASTATIN [Concomitant]
  6. OXYCODONE [Concomitant]
  7. FLOMAX [Concomitant]
  8. CENTRUM SILVER [Concomitant]
  9. VITAMIN B-12 [Concomitant]
  10. ASCORBIC ACID [Concomitant]
  11. VITAMIN-MINERAL COMPOUND TAB [Concomitant]

REACTIONS (3)
  - NAUSEA [None]
  - SYNCOPE [None]
  - VOMITING [None]
